FAERS Safety Report 5725804-4 (Version None)
Quarter: 2008Q2

REPORT INFORMATION
  Report Type: 
  Country: None (occurrence: None)
  Receive Date: 20080501
  Receipt Date: 20080428
  Transmission Date: 20081010
  Serious: Yes (Death, Other)
  Sender: FDA-Public Use
  Company Number: GB-BAYER-200810315BNE

PATIENT

DRUGS (1)
  1. MABCAMPATH [Suspect]
     Indication: T-CELL CHRONIC LYMPHOCYTIC LEUKAEMIA

REACTIONS (3)
  - CYTOMEGALOVIRUS TEST [None]
  - DEATH [None]
  - PANCYTOPENIA [None]
